FAERS Safety Report 6355098-0 (Version None)
Quarter: 2009Q3

REPORT INFORMATION
  Report Type: 
  Country: None (occurrence: None)
  Receive Date: 20090909
  Receipt Date: 20090901
  Transmission Date: 20100115
  Serious: Yes (Life-Threatening)
  Sender: FDA-Public Use
  Company Number: 369317

PATIENT
  Age: 38 Year
  Sex: Female

DRUGS (5)
  1. (VANCOMYCIN) [Suspect]
     Indication: ENDOCARDITIS BACTERIAL
     Dosage: 500 MG, 3 DAY
  2. TARGOCID [Suspect]
     Indication: ENDOCARDITIS BACTERIAL
  3. AMOXICILLIN [Concomitant]
  4. GENTAMICIN [Concomitant]
  5. RIFAMPICIN [Concomitant]

REACTIONS (6)
  - DIALYSIS [None]
  - DRUG RASH WITH EOSINOPHILIA AND SYSTEMIC SYMPTOMS [None]
  - LIVER DISORDER [None]
  - MULTI-ORGAN FAILURE [None]
  - NEUTROPENIA [None]
  - RENAL FAILURE [None]
